FAERS Safety Report 11405288 (Version 1)
Quarter: 2015Q3

REPORT INFORMATION
  Report Type: Spontaneous
  Country: US (occurrence: US)
  Receive Date: 20150821
  Receipt Date: 20150821
  Transmission Date: 20151125
  Serious: Yes (Death)
  Sender: FDA-Public Use
  Company Number: US-INCYTE CORPORATION-2015IN004144

PATIENT
  Sex: Male

DRUGS (6)
  1. METOPROLOL [Concomitant]
     Active Substance: METOPROLOL
  2. JAKAFI [Suspect]
     Active Substance: RUXOLITINIB
     Indication: MYELOFIBROSIS
     Dosage: 15 MG, BID
     Route: 048
  3. PLAVIX [Concomitant]
     Active Substance: CLOPIDOGREL BISULFATE
  4. HYDROXYUREA. [Concomitant]
     Active Substance: HYDROXYUREA
  5. ASPIRIN. [Concomitant]
     Active Substance: ASPIRIN
  6. ULORIC [Concomitant]
     Active Substance: FEBUXOSTAT

REACTIONS (1)
  - Death [Fatal]
